FAERS Safety Report 12151602 (Version 1)
Quarter: 2016Q1

REPORT INFORMATION
  Report Type: Spontaneous
  Country: US (occurrence: US)
  Receive Date: 20160304
  Receipt Date: 20160304
  Transmission Date: 20160526
  Serious: No
  Sender: FDA-Public Use
  Company Number: US-AMGEN-USASP2016018645

PATIENT
  Age: 72 Year
  Sex: Female

DRUGS (2)
  1. SENSIPAR [Suspect]
     Active Substance: CINACALCET HYDROCHLORIDE
     Indication: CHRONIC KIDNEY DISEASE
     Dosage: 30 MG, QD
     Route: 048
  2. HECTOROL [Concomitant]
     Active Substance: DOXERCALCIFEROL
     Dosage: 16 MG, UNK

REACTIONS (1)
  - Diarrhoea [Unknown]
